FAERS Safety Report 18142757 (Version 1)
Quarter: 2020Q3

REPORT INFORMATION
  Report Type: Spontaneous
  Country: US (occurrence: US)
  Receive Date: 20200813
  Receipt Date: 20200813
  Transmission Date: 20201103
  Serious: Yes (Life-Threatening, Hospitalization, Other)
  Sender: FDA-Public Use
  Company Number: US-AMGEN-USASP2020127560

PATIENT
  Age: 70 Year
  Sex: Female

DRUGS (4)
  1. TRASTUZUMAB. [Suspect]
     Active Substance: TRASTUZUMAB
     Indication: HER2 POSITIVE BREAST CANCER
     Dosage: UNK
     Route: 065
  2. AZITHROMYCIN ANHYDROUS. [Concomitant]
     Active Substance: AZITHROMYCIN ANHYDROUS
  3. ONDANSETRON [Concomitant]
     Active Substance: ONDANSETRON
  4. ARIPIPRAZOLE. [Concomitant]
     Active Substance: ARIPIPRAZOLE

REACTIONS (6)
  - Cardiotoxicity [Recovered/Resolved]
  - Respiratory failure [Unknown]
  - Bundle branch block left [Recovered/Resolved]
  - Cardiac failure acute [Recovered/Resolved]
  - Influenza A virus test positive [Unknown]
  - Bacterial infection [Unknown]
